FAERS Safety Report 7089249-X (Version None)
Quarter: 2010Q4

REPORT INFORMATION
  Report Type: 
  Country: None (occurrence: None)
  Receive Date: 20101029
  Receipt Date: 20101015
  Transmission Date: 20110411
  Serious: Yes (Hospitalization)
  Sender: FDA-Public Use
  Company Number: 020873

PATIENT
  Sex: Female

DRUGS (1)
  1. ROTIGOTINE (ONE OF ROTIGOTINE OR PLACEBO) [Suspect]
     Indication: RESTLESS LEGS SYNDROME
     Dosage: (3 MG QD)
     Dates: start: 20100903

REACTIONS (1)
  - ROAD TRAFFIC ACCIDENT [None]
